FAERS Safety Report 8250089-7 (Version None)
Quarter: 2012Q2

REPORT INFORMATION
  Report Type: 
  Country: None (occurrence: None)
  Receive Date: 20120402
  Receipt Date: 20120323
  Transmission Date: 20120825
  Serious: Yes (Other)
  Sender: FDA-Public Use
  Company Number: JP-SANOFI-AVENTIS-2012SA021426

PATIENT
  Sex: Female

DRUGS (2)
  1. TAXOTERE [Suspect]
     Route: 042
  2. GEMZAR [Concomitant]

REACTIONS (1)
  - BLINDNESS [None]
